FAERS Safety Report 7207366-8 (Version None)
Quarter: 2010Q4

REPORT INFORMATION
  Report Type: 
  Country: None (occurrence: None)
  Receive Date: 20101217
  Receipt Date: 20101210
  Transmission Date: 20110411
  Serious: Yes (Death)
  Sender: FDA-Public Use
  Company Number: 2010JP007277

PATIENT
  Age: 82 Year
  Sex: Female

DRUGS (2)
  1. PROGRAF [Suspect]
     Indication: RHEUMATOID ARTHRITIS
     Dosage: 0.5 MG, ORAL
     Route: 048
     Dates: end: 20101130
  2. MEDROL [Concomitant]

REACTIONS (1)
  - INTERSTITIAL LUNG DISEASE [None]
